FAERS Safety Report 21443402 (Version 2)
Quarter: 2023Q1

REPORT INFORMATION
  Report Type: Report from Study
  Country: US (occurrence: US)
  Receive Date: 20221012
  Receipt Date: 20230322
  Transmission Date: 20230417
  Serious: Yes (Hospitalization)
  Sender: FDA-Public Use
  Company Number: US-ABBVIE-4150986

PATIENT
  Age: 49 Year
  Sex: Male

DRUGS (2)
  1. SKYRIZI [Suspect]
     Active Substance: RISANKIZUMAB-RZAA
     Indication: Psoriasis
     Dosage: ONE IN ONCE?WEEK 0?FORM STRENGTH 150 MG
     Route: 058
     Dates: start: 20220403, end: 20220403
  2. SKYRIZI [Suspect]
     Active Substance: RISANKIZUMAB-RZAA
     Dosage: WEEK 04 AND EVERY QUARTERLY?FORM STRENGTH 150 MG
     Route: 058
     Dates: start: 202205

REACTIONS (5)
  - Pneumothorax [Unknown]
  - Chronic obstructive pulmonary disease [Unknown]
  - Off label use [Unknown]
  - Psoriasis [Unknown]
  - COVID-19 [Unknown]

NARRATIVE: CASE EVENT DATE: 20220403
